FAERS Safety Report 21699753 (Version 1)
Quarter: 2022Q4

REPORT INFORMATION
  Report Type: Spontaneous
  Country: US (occurrence: US)
  Receive Date: 20221208
  Receipt Date: 20221208
  Transmission Date: 20230113
  Serious: No
  Sender: FDA-Public Use
  Company Number: US-PFIZER INC-202201356503

PATIENT
  Age: 57 Year
  Sex: Female

DRUGS (6)
  1. IBRANCE [Suspect]
     Active Substance: PALBOCICLIB
     Dosage: UNK (DAILY FOR 21 DAYS FOLLOWED BY 7 DAYS OFF)
     Dates: start: 20220903
  2. LETROZOLE [Concomitant]
     Active Substance: LETROZOLE
     Dosage: 2.5 MG
  3. MELATONIN [Concomitant]
     Active Substance: MELATONIN
     Dosage: 1 MG (1MG/4)
  4. FUROSEMIDE [Concomitant]
     Active Substance: FUROSEMIDE
     Dosage: 20 MG
  5. CHEWABLE IRON [Concomitant]
     Dosage: UNK (30-10-2)
  6. DRAMAMINE LESS DROWSY FORMULA [Concomitant]
     Active Substance: MECLIZINE HYDROCHLORIDE
     Dosage: 25 MG

REACTIONS (2)
  - COVID-19 [Recovering/Resolving]
  - White blood cell count decreased [Recovering/Resolving]
